FAERS Safety Report 24288911 (Version 3)
Quarter: 2024Q3

REPORT INFORMATION
  Report Type: Spontaneous
  Country: TW (occurrence: TW)
  Receive Date: 20240906
  Receipt Date: 20240918
  Transmission Date: 20241017
  Serious: Yes (Other)
  Sender: MERCK
  Company Number: TW-009507513-2409TWN000120

PATIENT
  Age: 55 Year
  Sex: Female

DRUGS (7)
  1. PEMBROLIZUMAB [Suspect]
     Active Substance: PEMBROLIZUMAB
     Indication: Squamous cell carcinoma of the cervix
     Dosage: 200 MILLIGRAM, TRIWEELY, NEOADJUVANT TREATMENT (NAT)
     Dates: start: 201902, end: 2019
  2. PEMBROLIZUMAB [Suspect]
     Active Substance: PEMBROLIZUMAB
     Dosage: 100 MILLIGRAM, MONTHLY; MAINTENANCE THERAPY
     Dates: start: 201907, end: 202104
  3. PACLITAXEL [Concomitant]
     Active Substance: PACLITAXEL
     Indication: Squamous cell carcinoma of the cervix
     Dosage: 80 MILLIGRAM/SQ. METER, WEEKLY, NEOADJUVANT TREATMENT (NAT)
     Dates: start: 201902, end: 2019
  4. PACLITAXEL [Concomitant]
     Active Substance: PACLITAXEL
     Dosage: 175 MILLIGRAM/SQ. METER, MONTHLY; MAINTENANCE THERAPY
     Dates: start: 201907, end: 202104
  5. CISPLATIN [Concomitant]
     Active Substance: CISPLATIN
     Indication: Squamous cell carcinoma of the cervix
     Dosage: 40 MILLIGRAM/SQ. METER, TRI-WEEKLY, NEOADJUVNAT TREATMENT (NAT)
     Dates: start: 201902, end: 201907
  6. AVASTIN [Concomitant]
     Active Substance: BEVACIZUMAB
     Indication: Squamous cell carcinoma of the cervix
     Dosage: 7.5 MILLIGRAM/KILOGRAM (HALF-DOSE) TRI-WEEKLY, NEOADJUVANT TREATMENT (NAT)
     Dates: start: 201902, end: 2019
  7. AVASTIN [Concomitant]
     Active Substance: BEVACIZUMAB
     Dosage: 7.5 MILLIGRAM/KILOGRAM, MONTHLY; MAINTENANCE THERAPY
     Dates: start: 201911, end: 202104

REACTIONS (3)
  - Tumour pseudoprogression [Recovered/Resolved]
  - Immune-mediated hypothyroidism [Unknown]
  - Off label use [Unknown]

NARRATIVE: CASE EVENT DATE: 20190201
